FAERS Safety Report 9009783 (Version 7)
Quarter: 2013Q4

REPORT INFORMATION
  Report Type: Report from Study
  Country: FR (occurrence: FR)
  Receive Date: 20130110
  Receipt Date: 20131202
  Transmission Date: 20140711
  Serious: Yes (Hospitalization, Other)
  Sender: FDA-Public Use
  Company Number: FR-BAYER-2013-001991

PATIENT
  Sex: Female
  Weight: 68 kg

DRUGS (4)
  1. REGORAFENIB [Suspect]
     Indication: COLORECTAL CANCER METASTATIC
     Dosage: 160 MG, UNK
     Route: 048
     Dates: start: 20121220, end: 20121231
  2. DUROGESIC [Concomitant]
     Indication: PAIN
     Dosage: DAILY DOSE 75 ?G
     Route: 062
     Dates: start: 201211, end: 20121229
  3. MOVICOL [Concomitant]
     Indication: CONSTIPATION
     Dosage: 4 BAG PER DAY
     Route: 048
  4. IMODIUM [Concomitant]
     Indication: DIARRHOEA
     Dosage: UNK UNK, PRN
     Route: 048
     Dates: start: 20121229, end: 20121230

REACTIONS (2)
  - General physical health deterioration [Recovered/Resolved]
  - Confusional state [Not Recovered/Not Resolved]
